FAERS Safety Report 7132642-7 (Version None)
Quarter: 2010Q4

REPORT INFORMATION
  Report Type: 
  Country: None (occurrence: None)
  Receive Date: 20101202
  Receipt Date: 20101123
  Transmission Date: 20110411
  Serious: Yes (Hospitalization)
  Sender: FDA-Public Use
  Company Number: US-JNJFOC-20101107775

PATIENT
  Sex: Female

DRUGS (5)
  1. DOXIL [Suspect]
     Indication: OVARIAN CANCER
     Route: 050
  2. FISH OIL [Concomitant]
  3. MAGNESIUM [Concomitant]
  4. VITAMIN TAB [Concomitant]
  5. ZOLPIDEM [Concomitant]

REACTIONS (1)
  - INTESTINAL OBSTRUCTION [None]
